FAERS Safety Report 8501237-2 (Version None)
Quarter: 2012Q3

REPORT INFORMATION
  Report Type: 
  Country: None (occurrence: None)
  Receive Date: 20120710
  Receipt Date: 20120629
  Transmission Date: 20120928
  Serious: No
  Sender: FDA-Public Use
  Company Number: US-BAYER-2012-065529

PATIENT
  Age: 42 Year
  Sex: Male
  Weight: 80.272 kg

DRUGS (2)
  1. ALEVE (CAPLET) [Suspect]
     Indication: BACK PAIN
     Dosage: 2 DF, ONCE
     Route: 048
     Dates: start: 20120628, end: 20120628
  2. VITAMIN TAB [Concomitant]

REACTIONS (1)
  - LIP SWELLING [None]
